FAERS Safety Report 4612213-4 (Version None)
Quarter: 2005Q1

REPORT INFORMATION
  Report Type: 
  Country: None (occurrence: None)
  Receive Date: 20050308
  Receipt Date: 20041122
  Transmission Date: 20050727
  Serious: Yes (Other)
  Sender: FDA-Public Use
  Company Number: 2004UW24007

PATIENT
  Age: 67 Year
  Sex: Male

DRUGS (13)
  1. CRESTOR [Suspect]
     Indication: BLOOD CHOLESTEROL INCREASED
     Dosage: 10 MG QD PO
     Route: 048
  2. ISOSORBIDE [Concomitant]
  3. PLAVIX [Concomitant]
  4. TRICOR [Concomitant]
  5. FOLIC ACID [Concomitant]
  6. RANITIDINE [Concomitant]
  7. NEXIUM [Concomitant]
  8. PRIMIDONE [Concomitant]
  9. METOPROLOL TARTRATE [Concomitant]
  10. MULTI-VITAMINS [Concomitant]
  11. IRON SULFATETHIAMIN COMPOUND TAB [Concomitant]
  12. IMODIUM [Concomitant]
  13. ACETYLSALICYLIC ACID [Concomitant]

REACTIONS (1)
  - TREMOR [None]
